FAERS Safety Report 9117671 (Version 2)
Quarter: 2013Q1

REPORT INFORMATION
  Report Type: Spontaneous
  Country: US (occurrence: US)
  Receive Date: 20130225
  Receipt Date: 20130314
  Transmission Date: 20140127
  Serious: No
  Sender: FDA-Public Use
  Company Number: US-BIOGENIDEC-2013BI016030

PATIENT
  Sex: Male

DRUGS (3)
  1. TYSABRI [Suspect]
     Indication: MULTIPLE SCLEROSIS
     Route: 042
     Dates: start: 20080421, end: 20100720
  2. TYSABRI [Suspect]
     Indication: MULTIPLE SCLEROSIS
     Route: 042
     Dates: start: 20120301
  3. AVONEX [Concomitant]
     Indication: MULTIPLE SCLEROSIS
     Route: 030
     Dates: start: 19990401

REACTIONS (8)
  - Bladder disorder [Recovered/Resolved with Sequelae]
  - Diplopia [Recovered/Resolved with Sequelae]
  - Vision blurred [Not Recovered/Not Resolved]
  - Disturbance in attention [Recovered/Resolved with Sequelae]
  - Tremor [Not Recovered/Not Resolved]
  - Headache [Recovered/Resolved with Sequelae]
  - Fatigue [Recovered/Resolved with Sequelae]
  - Asthenia [Recovered/Resolved with Sequelae]
